FAERS Safety Report 23915788 (Version 1)
Quarter: 2024Q2

REPORT INFORMATION
  Report Type: Spontaneous
  Country: FR (occurrence: FR)
  Receive Date: 20240529
  Receipt Date: 20240529
  Transmission Date: 20240715
  Serious: Yes (Life-Threatening, Hospitalization)
  Sender: FDA-Public Use
  Company Number: None

PATIENT
  Age: 51 Year
  Sex: Male
  Weight: 64.5 kg

DRUGS (21)
  1. PEMETREXED [Suspect]
     Active Substance: PEMETREXED
     Indication: Lung adenocarcinoma
     Dosage: ROUTE OF ADMIN: INTRAVENOUS
     Dates: start: 20240411, end: 20240411
  2. KEYTRUDA [Suspect]
     Active Substance: PEMBROLIZUMAB
     Indication: Lung adenocarcinoma
     Dosage: ROA: INTRAVENOUS
     Dates: start: 20240313, end: 20240313
  3. KEYTRUDA [Suspect]
     Active Substance: PEMBROLIZUMAB
     Dosage: ROA: INTRAVENOUS
     Dates: start: 20240222, end: 20240222
  4. NALOXEGOL (OXALATE DE) [Concomitant]
     Indication: Product used for unknown indication
     Dosage: 25 MG IN THE MORNING?ROA: ORAL
  5. MOVICOL [E 336, SODIUM (BICARBONATE DE)] [Concomitant]
     Indication: Product used for unknown indication
     Dosage: 2 SACHETS IN THE MORNING?ROA: ORAL
  6. VENLAFAXINE HYDROCHLORIDE [VENLAFAXINE HYDROCHLORIDE] [Concomitant]
     Indication: Product used for unknown indication
     Dosage: 75 MG; 3 TABLETS IN THE MORNING?ROA: ORAL
  7. KARDEGIC [ACETYLSALICYLATE DE DL-LYSINE, DL-LYSINE (ACETYLSALICYLATE D [Concomitant]
     Indication: Product used for unknown indication
     Dosage: ROA: ORAL
  8. BIPRETERAX 10 mg/2.5 mg, film-coated tablet [INDAPAMIDE, PERINDOPRIL A [Concomitant]
     Indication: Product used for unknown indication
     Dosage: 75 MG; 3 TEASPOONS IN THE MORNING?ROA: ORAL
  9. CARBOPLATINE [CARBOPLATINE] [Concomitant]
     Indication: Lung adenocarcinoma
     Dosage: ROA: INTRAVENOUS
     Dates: start: 20240313, end: 20240313
  10. CARBOPLATINE [CARBOPLATINE] [Concomitant]
     Dosage: ROA: INTRAVENOUS
     Dates: start: 20240201, end: 20240201
  11. CARBOPLATINE [CARBOPLATINE] [Concomitant]
     Dosage: ROA: INTRAVENOUS
     Dates: start: 20240222, end: 20240222
  12. VALPROATE SODIUM [Concomitant]
     Active Substance: VALPROATE SODIUM
     Indication: Product used for unknown indication
     Dosage: 500 MG 2 TABLETS MORNING AND EVENING?ROA: ORAL
  13. ALPRAZOLAM [ALPRAZOLAM] [Concomitant]
     Indication: Product used for unknown indication
     Dosage: 0.5 MG MORNING AND EVENING?ROA: ORAL
  14. ONDANSETRON [Concomitant]
     Active Substance: ONDANSETRON
     Indication: Product used for unknown indication
     Dosage: 8 MG MORNING AND EVENING?ROA: ORAL
  15. ATORVASTATIN [Concomitant]
     Active Substance: ATORVASTATIN
     Indication: Product used for unknown indication
     Dosage: 40 MG 2 TABLETS IN THE EVENING?ROA: ORAL
  16. SSKENAN L.P. 10 mg, sustained-release microgranules in capsule [MORPHI [Concomitant]
     Indication: Product used for unknown indication
     Dosage: 20 MG MORNING AND EVENING?ROA: ORAL
  17. NICOPATCH 21 mg/24h, transdermal device 52.5 mg/30 cm? [NICOTINE] [Concomitant]
     Indication: Product used for unknown indication
     Dosage: 21MG/24H?ROA: TRANSDERMAL
  18. ACTISKENAN 10 mg, capsule [MORPHINE SULFATE] [Concomitant]
     Indication: Product used for unknown indication
     Dosage: IF NECESSARY EVERY 4 HOURS?DOSAGE FORM: CAPSULE?ROA: ORAL
  19. PACLITAXEL [Concomitant]
     Active Substance: PACLITAXEL
     Indication: Lung adenocarcinoma
     Dosage: ROA: INTRAVENOUS
     Dates: start: 20240313, end: 20240313
  20. PACLITAXEL [Concomitant]
     Active Substance: PACLITAXEL
     Dosage: ROA: INTRAVENOUS (NOT OTHERWISE SPECIFIED) ( INT )
     Dates: start: 20240222, end: 20240222
  21. VERAPAMIL HYDROCHLORIDE [VERAPAMIL HYDROCHLORIDE]]. [Concomitant]
     Indication: Product used for unknown indication
     Dosage: 120 MG IN THE MORNING?ROA: ORAL

REACTIONS (2)
  - Haemophagocytic lymphohistiocytosis [Recovering/Resolving]
  - Rash [Recovering/Resolving]

NARRATIVE: CASE EVENT DATE: 20240423
